FAERS Safety Report 23393903 (Version 1)
Quarter: 2024Q1

REPORT INFORMATION
  Report Type: Report from Study
  Country: US (occurrence: US)
  Receive Date: 20240111
  Receipt Date: 20240111
  Transmission Date: 20240410
  Serious: Yes (Hospitalization, Other)
  Sender: FDA-Public Use
  Company Number: US-AURINIA PHARMACEUTICALS INC.-AUR-004977

PATIENT
  Age: 73 Year
  Sex: Female

DRUGS (6)
  1. LUPKYNIS [Suspect]
     Active Substance: VOCLOSPORIN
     Indication: Product used for unknown indication
     Dosage: 15.8 MILLIGRAM, BID
     Route: 048
     Dates: start: 20220304
  2. LUPKYNIS [Suspect]
     Active Substance: VOCLOSPORIN
     Dosage: UNK
     Dates: start: 202308
  3. REVATIO [Concomitant]
     Active Substance: SILDENAFIL CITRATE
     Indication: Product used for unknown indication
     Dosage: UNK
  4. MYCOPHENOLATE MOFETIL [Concomitant]
     Active Substance: MYCOPHENOLATE MOFETIL
     Indication: Product used for unknown indication
     Dosage: UNK
  5. DILTIAZEM HYDROCHLORIDE [Concomitant]
     Active Substance: DILTIAZEM HYDROCHLORIDE
     Indication: Product used for unknown indication
     Dosage: 300 MILLIGRAM, QD
  6. LASIX [Concomitant]
     Active Substance: FUROSEMIDE
     Indication: Product used for unknown indication
     Dosage: UNK

REACTIONS (8)
  - Pulmonary oedema [Unknown]
  - Leukopenia [Unknown]
  - Glomerular filtration rate abnormal [Unknown]
  - Pulmonary hypertension [Unknown]
  - Acute kidney injury [Unknown]
  - Blood creatinine increased [Unknown]
  - Urine protein/creatinine ratio abnormal [Unknown]
  - Anaemia [Unknown]

NARRATIVE: CASE EVENT DATE: 20230801
